FAERS Safety Report 5638300-X (Version None)
Quarter: 2008Q1

REPORT INFORMATION
  Report Type: 
  Country: None (occurrence: None)
  Receive Date: 20080221
  Receipt Date: 20080212
  Transmission Date: 20080703
  Serious: Yes (Other)
  Sender: FDA-Public Use
  Company Number: 023859

PATIENT
  Age: 17 Year
  Sex: Female
  Weight: 59 kg

DRUGS (3)
  1. CLARAVIS [Suspect]
     Dosage: ORAL
     Route: 048
     Dates: start: 20071128
  2. ACCUTANE [Suspect]
     Dates: start: 20060605
  3. YASMIN [Suspect]
     Dosage: ORAL
     Route: 048

REACTIONS (3)
  - ABDOMINAL DISCOMFORT [None]
  - HAEMATOCHEZIA [None]
  - URINARY TRACT INFECTION [None]
